FAERS Safety Report 6815012-8 (Version None)
Quarter: 2010Q3

REPORT INFORMATION
  Report Type: 
  Country: None (occurrence: None)
  Receive Date: 20100702
  Receipt Date: 20100629
  Transmission Date: 20110219
  Serious: Yes (Death)
  Sender: FDA-Public Use
  Company Number: US-JNJFOC-20100302940

PATIENT
  Sex: Male

DRUGS (3)
  1. CONCERTA [Suspect]
     Indication: ATTENTION DEFICIT/HYPERACTIVITY DISORDER
     Route: 048
  2. PAXIL [Concomitant]
     Indication: ANXIETY
     Route: 065
  3. PAXIL [Concomitant]
     Route: 065

REACTIONS (1)
  - THROMBOCYTOPENIC PURPURA [None]
